FAERS Safety Report 24234699 (Version 1)
Quarter: 2024Q3

REPORT INFORMATION
  Report Type: Report from Study
  Country: CA (occurrence: CA)
  Receive Date: 20240821
  Receipt Date: 20240821
  Transmission Date: 20241016
  Serious: Yes (Hospitalization, Other)
  Sender: EISAI
  Company Number: CA-Eisai-EC-2024-172341

PATIENT
  Age: 73 Year
  Sex: Male

DRUGS (4)
  1. LENVIMA [Suspect]
     Active Substance: LENVATINIB
     Indication: Hepatocellular carcinoma
     Route: 048
     Dates: start: 20230426, end: 202306
  2. LENVIMA [Suspect]
     Active Substance: LENVATINIB
     Route: 048
     Dates: start: 20230619, end: 202311
  3. LENVIMA [Suspect]
     Active Substance: LENVATINIB
     Dosage: WAS OFF FOR A COUPLE OF DAYS DUE TO AN INFECTION
     Route: 048
     Dates: start: 202401, end: 2024
  4. LENVIMA [Suspect]
     Active Substance: LENVATINIB
     Route: 048
     Dates: start: 2024, end: 20240813

REACTIONS (3)
  - Hypotension [Not Recovered/Not Resolved]
  - Cataract [Unknown]
  - Fall [Unknown]

NARRATIVE: CASE EVENT DATE: 20231101
